FAERS Safety Report 7400348-2 (Version None)
Quarter: 2011Q2

REPORT INFORMATION
  Report Type: 
  Country: None (occurrence: None)
  Receive Date: 20110405
  Receipt Date: 20110405
  Transmission Date: 20111010
  Serious: No
  Sender: FDA-Public Use
  Company Number: None

PATIENT
  Age: 18 Year
  Sex: Male
  Weight: 63.5036 kg

DRUGS (1)
  1. ISOTRETINOIN [Suspect]
     Indication: ACNE
     Dates: start: 20091201, end: 20100601

REACTIONS (7)
  - PALLOR [None]
  - HUNGER [None]
  - WEIGHT FLUCTUATION [None]
  - FATIGUE [None]
  - INFLAMMATORY BOWEL DISEASE [None]
  - MALAISE [None]
  - APHAGIA [None]
